FAERS Safety Report 5891568-7 (Version None)
Quarter: 2008Q3

REPORT INFORMATION
  Report Type: 
  Country: None (occurrence: None)
  Receive Date: 20080918
  Receipt Date: 20080903
  Transmission Date: 20090109
  Serious: Yes (Death, Hospitalization, Other)
  Sender: FDA-Public Use
  Company Number: 2008001475

PATIENT
  Age: 54 Year
  Sex: Female

DRUGS (18)
  1. TARCEVA [Suspect]
     Indication: NON-SMALL CELL LUNG CANCER
     Dosage: (150 MG,QD), ORAL
     Route: 048
     Dates: start: 20080604, end: 20080608
  2. AUGMENTIN '125' [Concomitant]
  3. ACETAMINOPHEN [Concomitant]
  4. ENOXAPARIN SODIUM [Concomitant]
  5. MEDROL [Concomitant]
  6. PANTOPRAZOLE SODIUM [Concomitant]
  7. FLUOXETINE [Concomitant]
  8. PARASOL [Concomitant]
  9. CLONAZEPAM [Concomitant]
  10. DEPAKENE [Concomitant]
  11. MYOLASTAN (TETRAZEPAM) [Concomitant]
  12. LYSOMUCIL (ACETYLCYSTEINE) [Concomitant]
  13. LASIX [Concomitant]
  14. PERFUSALGAN [Concomitant]
  15. LORAZEPAM [Concomitant]
  16. AMLODIPINE BESYLATE [Concomitant]
  17. ACETAMINOPHEN [Concomitant]
  18. ACTRAPID [Concomitant]

REACTIONS (9)
  - BRONCHIAL HAEMORRHAGE [None]
  - GENERAL PHYSICAL HEALTH DETERIORATION [None]
  - HAEMOGLOBIN DECREASED [None]
  - HAEMOPTYSIS [None]
  - HEPATIC INFARCTION [None]
  - HEPATOTOXICITY [None]
  - INFLAMMATION [None]
  - MALIGNANT NEOPLASM PROGRESSION [None]
  - METASTASES TO LIVER [None]
